FAERS Safety Report 4568301-4 (Version None)
Quarter: 2005Q1

REPORT INFORMATION
  Report Type: 
  Country: None (occurrence: None)
  Receive Date: 20050202
  Receipt Date: 20050124
  Transmission Date: 20050727
  Serious: Yes (Other)
  Sender: FDA-Public Use
  Company Number: JP-GLAXOSMITHKLINE-B0366524A

PATIENT
  Age: 63 Year
  Sex: Female
  Weight: 54 kg

DRUGS (8)
  1. MODACIN [Suspect]
     Dosage: 1G TWICE PER DAY
     Route: 042
     Dates: start: 20041104, end: 20041108
  2. CALSLOT [Concomitant]
     Route: 048
  3. MAINTATE [Concomitant]
     Route: 048
  4. CINAL [Concomitant]
     Route: 048
  5. ALINAMIN-F [Concomitant]
     Route: 065
  6. DEPAS [Concomitant]
     Route: 048
  7. TOUGHMAC E [Concomitant]
     Route: 048
  8. PONTAL [Concomitant]
     Route: 048

REACTIONS (4)
  - ALANINE AMINOTRANSFERASE INCREASED [None]
  - ASPARTATE AMINOTRANSFERASE INCREASED [None]
  - GAMMA-GLUTAMYLTRANSFERASE INCREASED [None]
  - HEPATIC FUNCTION ABNORMAL [None]
